FAERS Safety Report 10952148 (Version 1)
Quarter: 2015Q1

REPORT INFORMATION
  Report Type: Spontaneous
  Country: US (occurrence: None)
  Receive Date: 20150324
  Receipt Date: 20150324
  Transmission Date: 20150721
  Serious: Yes (Other)
  Sender: FDA-Public Use
  Company Number: None

PATIENT
  Age: 57 Year
  Sex: Female

DRUGS (1)
  1. H.P. ACTHAR [Suspect]
     Active Substance: CORTICOTROPIN
     Indication: ARTHRALGIA
     Dosage: 80-UNITS
     Route: 030
     Dates: start: 20150113, end: 20150323

REACTIONS (1)
  - Drug interaction [None]

NARRATIVE: CASE EVENT DATE: 20150313
